FAERS Safety Report 22172912 (Version 2)
Quarter: 2023Q2

REPORT INFORMATION
  Report Type: Spontaneous
  Country: AR (occurrence: AR)
  Receive Date: 20230404
  Receipt Date: 20230410
  Transmission Date: 20230721
  Serious: Yes (Hospitalization, Other)
  Sender: FDA-Public Use
  Company Number: AR-MYLANLABS-2023M1029008

PATIENT
  Age: 23 Year
  Sex: Female

DRUGS (3)
  1. CLOZAPINE [Suspect]
     Active Substance: CLOZAPINE
     Indication: Product used for unknown indication
     Dosage: 100 MILLIGRAM, QD
     Route: 065
     Dates: start: 20190704, end: 20230321
  2. CLONAZEPAM [Concomitant]
     Active Substance: CLONAZEPAM
     Dosage: 1.5 MILLIGRAM, QD
     Route: 048
  3. PAROXETINE [Concomitant]
     Active Substance: PAROXETINE
     Dosage: 20 MILLIGRAM, QD
     Route: 048

REACTIONS (4)
  - Hospitalisation [Unknown]
  - Neutropenia [Unknown]
  - White blood cell count decreased [Unknown]
  - Lower urinary tract symptoms [Unknown]

NARRATIVE: CASE EVENT DATE: 20230315
